FAERS Safety Report 13352599 (Version 3)
Quarter: 2017Q2

REPORT INFORMATION
  Report Type: Spontaneous
  Country: TR (occurrence: TR)
  Receive Date: 20170320
  Receipt Date: 20170427
  Transmission Date: 20170830
  Serious: Yes (Other)
  Sender: FDA-Public Use
  Company Number: TR-BAYER-2017-051524

PATIENT
  Age: 66 Year
  Sex: Male

DRUGS (3)
  1. TRIAMCINOLONE ACETONIDE. [Suspect]
     Active Substance: TRIAMCINOLONE ACETONIDE
     Indication: IRIS NEOVASCULARISATION
     Dosage: 2 MG, UNK
     Route: 031
  2. ACETYLSALICYLIC ACID({=100 MG) [Suspect]
     Active Substance: ASPIRIN
     Indication: CAROTID ARTERY STENOSIS
     Dosage: 100 MG, UNK
  3. EYLEA [Suspect]
     Active Substance: AFLIBERCEPT
     Indication: IRIS NEOVASCULARISATION
     Dosage: 2 MG, UNK
     Route: 031

REACTIONS (3)
  - Off label use [None]
  - Hypopyon [None]
  - Anterior chamber inflammation [None]
